FAERS Safety Report 11141824 (Version 2)
Quarter: 2015Q2

REPORT INFORMATION
  Report Type: Other
  Country: FR (occurrence: FR)
  Receive Date: 20150527
  Receipt Date: 20150603
  Transmission Date: 20150821
  Serious: Yes (Death, Life-Threatening, Hospitalization, Other)
  Sender: FDA-Public Use
  Company Number: FR-SYMPLMED PHARMACEUTICALS-2015SYMPLMED000016

PATIENT

DRUGS (5)
  1. LEVOTHYROX [Concomitant]
     Active Substance: LEVOTHYROXINE
     Indication: PRODUCT USED FOR UNKNOWN INDICATION
     Dosage: UNKNOWN
  2. VALIUM [Suspect]
     Active Substance: DIAZEPAM
     Indication: PRODUCT USED FOR UNKNOWN INDICATION
     Dosage: 800 MG, QD
     Route: 048
     Dates: start: 20150226, end: 20150226
  3. COVERAM [Suspect]
     Active Substance: AMLODIPINE\PERINDOPRIL
     Indication: PRODUCT USED FOR UNKNOWN INDICATION
     Dosage: 900 MG, SINGLE
     Route: 048
     Dates: start: 20150226, end: 20150226
  4. ZOPICLONE [Suspect]
     Active Substance: ZOPICLONE
     Indication: PRODUCT USED FOR UNKNOWN INDICATION
     Dosage: 420 MG, SINGLE
     Route: 048
     Dates: start: 20150226, end: 20150226
  5. LITHIUM. [Concomitant]
     Active Substance: LITHIUM
     Indication: PRODUCT USED FOR UNKNOWN INDICATION
     Dosage: UNKNOWN

REACTIONS (10)
  - Cardiogenic shock [Fatal]
  - Bacteraemia [Unknown]
  - Disseminated intravascular coagulation [Unknown]
  - Hypotension [Fatal]
  - Rhythm idioventricular [Unknown]
  - Circulatory collapse [Fatal]
  - Nodal rhythm [Unknown]
  - Electrocardiogram QRS complex prolonged [Unknown]
  - Intentional overdose [Unknown]
  - Somnolence [Unknown]

NARRATIVE: CASE EVENT DATE: 20150226
